FAERS Safety Report 6938399-4 (Version None)
Quarter: 2010Q3

REPORT INFORMATION
  Report Type: 
  Country: None (occurrence: None)
  Receive Date: 20100824
  Receipt Date: 20100812
  Transmission Date: 20110219
  Serious: Yes (Hospitalization, Other)
  Sender: FDA-Public Use
  Company Number: US-PFIZER INC-2010052985

PATIENT
  Sex: Male

DRUGS (7)
  1. CHANTIX [Suspect]
     Indication: SMOKING CESSATION THERAPY
     Dosage: STARTER PACK AND CONTINOUS PACK
     Dates: start: 20070101, end: 20090501
  2. CIALIS [Concomitant]
     Indication: ERECTILE DYSFUNCTION
     Dosage: UNK
     Dates: start: 20070301
  3. LUNESTA [Concomitant]
     Indication: INSOMNIA
     Dosage: UNK
     Dates: start: 20070301, end: 20080301
  4. CIPROFLOXACIN [Concomitant]
     Indication: ANTIBIOTIC THERAPY
     Dosage: UNK
     Dates: start: 20070301, end: 20081101
  5. ALBUTEROL [Concomitant]
     Indication: DYSPNOEA
     Dosage: UNK
     Dates: start: 20070401, end: 20090401
  6. LEVITRA [Concomitant]
     Indication: BENIGN PROSTATIC HYPERPLASIA
     Dosage: UNK
     Dates: start: 20070301, end: 20100101
  7. ACETAMINOPHEN AND HYDROCODONE BITARTRATE [Concomitant]
     Indication: PAIN
     Dosage: UNK
     Dates: start: 20070901, end: 20090901

REACTIONS (5)
  - ANXIETY [None]
  - BIPOLAR DISORDER [None]
  - DEPRESSION [None]
  - INSOMNIA [None]
  - MANIA [None]
